FAERS Safety Report 9477757 (Version 2)
Quarter: 2013Q3

REPORT INFORMATION
  Report Type: Spontaneous
  Country: US (occurrence: US)
  Receive Date: 20130827
  Receipt Date: 20130912
  Transmission Date: 20140515
  Serious: No
  Sender: FDA-Public Use
  Company Number: US-009507513-1308USA011321

PATIENT
  Sex: Female

DRUGS (1)
  1. NEXPLANON [Suspect]
     Route: 059

REACTIONS (1)
  - Metrorrhagia [Unknown]
